FAERS Safety Report 25884350 (Version 1)
Quarter: 2025Q4

REPORT INFORMATION
  Report Type: Spontaneous
  Country: EU (occurrence: EU)
  Receive Date: 20251006
  Receipt Date: 20251006
  Transmission Date: 20260118
  Serious: Yes (Other)
  Sender: B. BRAUN MEDICAL INC.
  Company Number: None

PATIENT
  Age: 69 Year
  Sex: Female
  Weight: 73 kg

DRUGS (2)
  1. ACETAMINOPHEN [Suspect]
     Active Substance: ACETAMINOPHEN
     Indication: Tendonitis
     Dosage: 3X PER DAG 500 MG?500 MG 3 TIMES A DAY
     Dates: start: 20230801, end: 20240801
  2. LEVOTHYROXINE TABLET  50UG (NATRIUM) / Brand name not specified [Concomitant]
     Dosage: TABLET, 50 G (MICROGRAM)

REACTIONS (3)
  - Eczema [Recovering/Resolving]
  - Rash pruritic [Recovering/Resolving]
  - Seborrhoeic keratosis [Recovering/Resolving]
